FAERS Safety Report 4958097-6 (Version None)
Quarter: 2006Q1

REPORT INFORMATION
  Report Type: 
  Country: None (occurrence: None)
  Receive Date: 20060330
  Receipt Date: 20060301
  Transmission Date: 20060701
  Serious: Yes (Hospitalization)
  Sender: FDA-Public Use
  Company Number: US-MERCK-0603USA00416

PATIENT
  Age: 60 Year
  Sex: Female
  Weight: 68 kg

DRUGS (26)
  1. VIOXX [Suspect]
     Indication: ARTHRITIS
     Route: 048
     Dates: start: 20010118, end: 20040927
  2. VIOXX [Suspect]
     Route: 048
     Dates: start: 20010118, end: 20040927
  3. FLOVENT [Concomitant]
     Route: 065
  4. SEREVENT [Concomitant]
     Route: 065
  5. COMBIVENT [Concomitant]
     Route: 065
  6. AGYRAX (MECLIZINE HYDROCHLORIDE) [Concomitant]
     Route: 065
  7. ZITHROMAX [Concomitant]
     Route: 065
  8. DETROL [Concomitant]
     Route: 065
  9. MYAMBUTOL [Concomitant]
     Route: 065
  10. VENTILAN (ALBUTEROL) [Concomitant]
     Route: 065
  11. LORAZEPAM [Concomitant]
     Route: 065
  12. MYCELEX [Concomitant]
     Route: 065
  13. KLOR-CON [Concomitant]
     Route: 065
  14. PREDNISONE [Concomitant]
     Route: 065
  15. TEQUIN [Concomitant]
     Route: 065
  16. FUROSEMIDE [Concomitant]
     Route: 065
  17. ADVAIR DISKUS 100/50 [Concomitant]
     Route: 065
  18. ACCOLATE [Concomitant]
     Route: 065
  19. INDAPAMIDE [Concomitant]
     Route: 065
  20. CLINDAMYCIN [Concomitant]
     Route: 065
  21. PLAVIX [Concomitant]
     Route: 065
  22. ALTACE [Concomitant]
     Route: 065
  23. LEVAQUIN [Concomitant]
     Route: 065
  24. ZOCOR [Concomitant]
     Route: 048
  25. DIOVAN [Concomitant]
     Route: 065
  26. AMBIEN [Concomitant]
     Route: 065

REACTIONS (1)
  - CEREBROVASCULAR ACCIDENT [None]
